FAERS Safety Report 24709862 (Version 2)
Quarter: 2025Q1

REPORT INFORMATION
  Report Type: Spontaneous
  Country: CZ (occurrence: CZ)
  Receive Date: 20241209
  Receipt Date: 20250107
  Transmission Date: 20250409
  Serious: Yes (Hospitalization, Other)
  Sender: SANOFI AVENTIS
  Company Number: CZ-SA-2024SA357373

PATIENT
  Age: 51 Year
  Sex: Female

DRUGS (8)
  1. AVALGLUCOSIDASE ALFA [Suspect]
     Active Substance: AVALGLUCOSIDASE ALFA
     Indication: Glycogen storage disease type II
     Dosage: 1300 MG, QOW
     Route: 042
     Dates: start: 20230912, end: 2024
  2. AVALGLUCOSIDASE ALFA [Suspect]
     Active Substance: AVALGLUCOSIDASE ALFA
     Dosage: 1300 MG, QOW
     Route: 042
     Dates: start: 20241129
  3. ZALDIAR [Concomitant]
     Active Substance: ACETAMINOPHEN\TRAMADOL HYDROCHLORIDE
  4. BUPRENORPHINE [Concomitant]
     Active Substance: BUPRENORPHINE
  5. IBUPROFEN [Concomitant]
     Active Substance: IBUPROFEN
  6. PALEXIA [Concomitant]
     Active Substance: TAPENTADOL HYDROCHLORIDE
  7. BUPRENORPHINE [Concomitant]
     Active Substance: BUPRENORPHINE
  8. ISOPTIN [Concomitant]
     Active Substance: VERAPAMIL HYDROCHLORIDE

REACTIONS (9)
  - Neoplasm malignant [Unknown]
  - Immobile [Unknown]
  - Pleural effusion [Unknown]
  - Ascites [Unknown]
  - Hypokalaemia [Unknown]
  - Inflammatory marker increased [Unknown]
  - Bedridden [Unknown]
  - C-reactive protein increased [Not Recovered/Not Resolved]
  - Pyrexia [Unknown]

NARRATIVE: CASE EVENT DATE: 20240101
